FAERS Safety Report 12349004 (Version 1)
Quarter: 2016Q2

REPORT INFORMATION
  Report Type: Spontaneous
  Country: JP (occurrence: JP)
  Receive Date: 20160509
  Receipt Date: 20160509
  Transmission Date: 20160815
  Serious: Yes (Other)
  Sender: FDA-Public Use
  Company Number: JP-HQ SPECIALTY-JP-2016INT000260

PATIENT
  Age: 50 Year
  Sex: Female

DRUGS (4)
  1. DENOSUMAB [Concomitant]
     Active Substance: DENOSUMAB
     Indication: OSTEOLYSIS
     Dosage: 120 MG, [D1] Q4W
  2. ANASTROZOLE. [Concomitant]
     Active Substance: ANASTROZOLE
     Indication: OESTROGEN RECEPTOR POSITIVE BREAST CANCER
     Dosage: 1 MG, QD
  3. CISPLATIN. [Suspect]
     Active Substance: CISPLATIN
     Indication: GASTRIC CANCER STAGE IV
     Dosage: 40 MG/M2 (D1) Q3W
     Route: 065
     Dates: start: 201205
  4. CAPECITABINE. [Suspect]
     Active Substance: CAPECITABINE
     Indication: GASTRIC CANCER STAGE IV
     Dosage: 1000 MG/M2, BID [D1-14]
     Dates: start: 201205

REACTIONS (1)
  - Gastrointestinal toxicity [Unknown]
